FAERS Safety Report 25946987 (Version 1)
Quarter: 2025Q4

REPORT INFORMATION
  Report Type: Spontaneous
  Country: GB (occurrence: GB)
  Receive Date: 20251022
  Receipt Date: 20251022
  Transmission Date: 20260117
  Serious: Yes (Other)
  Sender: JUBILANT
  Company Number: None

PATIENT

DRUGS (7)
  1. PREGABALIN [Suspect]
     Active Substance: PREGABALIN
     Indication: Product used for unknown indication
     Dosage: UNK, UNK
     Route: 065
     Dates: start: 20251009
  2. AMITRIPTYLINE HYDROCHLORIDE [Concomitant]
     Active Substance: AMITRIPTYLINE HYDROCHLORIDE
     Indication: Product used for unknown indication
     Dosage: UNK, UNK (TAKE TWO AT NIGHT)
     Route: 065
     Dates: start: 20250715, end: 20250812
  3. DIAZEPAM [Concomitant]
     Active Substance: DIAZEPAM
     Indication: Pain
     Dosage: UNK, UNK (TAKE ONE TO TWO FOR PAIN IF NEEDED MAXIMUM TWIC...)
     Route: 065
     Dates: start: 20251009
  4. COCODAMOL [Concomitant]
     Active Substance: ACETAMINOPHEN\CODEINE PHOSPHATE
     Indication: Pain
     Dosage: UNK, UNK (TAKE 1 OR 2 4 TIMES/DAY F)
     Route: 065
     Dates: start: 20241119
  5. MIRTAZAPINE [Concomitant]
     Active Substance: MIRTAZAPINE
     Indication: Product used for unknown indication
     Dosage: UNK UNK, ONCE PER DAY (TAKE ONE AT NIGHT)
     Route: 065
     Dates: start: 20250514
  6. PREGABALIN [Concomitant]
     Active Substance: PREGABALIN
     Indication: Product used for unknown indication
     Dosage: UNK UNK, 2 TIMES PER DAY (TAKE ONE TWICE DAILY)
     Route: 065
     Dates: start: 20250909, end: 20251009
  7. DULOXETINE [Concomitant]
     Active Substance: DULOXETINE
     Indication: Product used for unknown indication
     Dosage: UNK UNK, ONCE PER DAY (TAKE ONE IN THE MORNING)
     Route: 065
     Dates: start: 20251009

REACTIONS (1)
  - Decreased appetite [Recovered/Resolved]

NARRATIVE: CASE EVENT DATE: 20251009
